FAERS Safety Report 15435469 (Version 2)
Quarter: 2018Q3

REPORT INFORMATION
  Report Type: Spontaneous
  Country: JP (occurrence: JP)
  Receive Date: 20180927
  Receipt Date: 20180927
  Transmission Date: 20181010
  Serious: Yes (Other)
  Sender: FDA-Public Use
  Company Number: JP-TEVA-2017-JP-004265J

PATIENT
  Age: 69 Year
  Sex: Male
  Weight: 56 kg

DRUGS (16)
  1. NICOTINAMIDE [Concomitant]
     Active Substance: NIACINAMIDE
     Dosage: 390 MILLIGRAM DAILY;
     Route: 065
     Dates: start: 20171028
  2. APIDRA [Concomitant]
     Active Substance: INSULIN GLULISINE
     Route: 065
  3. PREDNISOLONE TABLETS 5MG. [Suspect]
     Active Substance: PREDNISOLONE
     Dosage: 10 MILLIGRAM DAILY;
     Route: 048
     Dates: start: 20171111
  4. PREDNISOLONE TABLETS 5MG. [Suspect]
     Active Substance: PREDNISOLONE
     Dosage: 20 MILLIGRAM DAILY;
     Route: 048
     Dates: start: 20171028, end: 20171103
  5. PREDNISOLONE TABLETS 5MG. [Suspect]
     Active Substance: PREDNISOLONE
     Dosage: 15 MILLIGRAM DAILY;
     Route: 048
     Dates: start: 20171104, end: 20171110
  6. FEBURIC [Concomitant]
     Active Substance: FEBUXOSTAT
     Dosage: 10 MILLIGRAM DAILY;
     Route: 065
  7. MICARDIS [Concomitant]
     Active Substance: TELMISARTAN
     Dosage: 40 MILLIGRAM DAILY;
     Route: 065
  8. APIDRA [Concomitant]
     Active Substance: INSULIN GLULISINE
     Route: 065
  9. DONEPEZIL HYDROCHLORIDE OD [Concomitant]
     Dosage: 5 MILLIGRAM DAILY;
     Route: 065
  10. FAMOTIDINE OD [Concomitant]
     Active Substance: FAMOTIDINE
     Dosage: 20 MILLIGRAM DAILY;
     Route: 065
  11. FEXOFENADINE HYDROCHLORIDE OD [Concomitant]
     Dosage: 60 MILLIGRAM DAILY;
     Route: 065
     Dates: start: 20171028
  12. PREDNISOLONE TABLETS 5MG. [Suspect]
     Active Substance: PREDNISOLONE
     Indication: PEMPHIGOID
     Dosage: 15 MILLIGRAM DAILY;
     Route: 048
     Dates: start: 20171027, end: 20171027
  13. TRESIBA [Concomitant]
     Active Substance: INSULIN DEGLUDEC
     Route: 065
  14. ALFAROL [Concomitant]
     Active Substance: ALFACALCIDOL
     Dosage: .25 MICROGRAM DAILY;
     Route: 065
  15. APIDRA [Concomitant]
     Active Substance: INSULIN GLULISINE
     Route: 065
  16. ACHROMYCIN V [Concomitant]
     Active Substance: TETRACYCLINE HYDROCHLORIDE
     Dosage: 250 MILLIGRAM DAILY;
     Route: 065
     Dates: start: 20171028

REACTIONS (1)
  - Hyperglycaemia [Recovered/Resolved]

NARRATIVE: CASE EVENT DATE: 20171027
